FAERS Safety Report 6933957-5 (Version None)
Quarter: 2010Q3

REPORT INFORMATION
  Report Type: 
  Country: None (occurrence: None)
  Receive Date: 20100820
  Receipt Date: 20100803
  Transmission Date: 20110219
  Serious: Yes (Hospitalization, Other)
  Sender: FDA-Public Use
  Company Number: US-BAYER-200939502NA

PATIENT
  Age: 23 Year
  Sex: Female
  Weight: 79 kg

DRUGS (3)
  1. YASMIN [Suspect]
     Indication: ACNE
     Route: 048
     Dates: start: 20021201, end: 20031001
  2. EXCEDRIN (MIGRAINE) [Concomitant]
     Indication: PAIN
     Dosage: PRN FOR ACHES/PAIN
  3. TAGAMET [Concomitant]
     Indication: DYSPEPSIA
     Dosage: PRN FOR HEART BURN

REACTIONS (9)
  - CHEST PAIN [None]
  - COUGH [None]
  - DEPRESSION [None]
  - DYSPNOEA [None]
  - PAINFUL RESPIRATION [None]
  - PULMONARY EMBOLISM [None]
  - PULMONARY INFARCTION [None]
  - SYNCOPE [None]
  - TACHYCARDIA [None]
